FAERS Safety Report 9883353 (Version 3)
Quarter: 2014Q1

REPORT INFORMATION
  Report Type: Spontaneous
  Country: DE (occurrence: DE)
  Receive Date: 20140210
  Receipt Date: 20140310
  Transmission Date: 20141002
  Serious: Yes (Hospitalization)
  Sender: FDA-Public Use
  Company Number: DE-PFIZER INC-2014012311

PATIENT
  Age: 83 Year
  Sex: Male
  Weight: 85 kg

DRUGS (5)
  1. LYRICA [Suspect]
     Indication: PARAESTHESIA
     Dosage: 25 MG, 0-0-1 (2)
     Route: 048
     Dates: start: 201207, end: 20140114
  2. RAMIPRIL [Concomitant]
     Dosage: 5 UNK, 1X/DAY
  3. L-THYROXIN [Concomitant]
     Dosage: 75 UNK, 1X/DAY
  4. ALLOPURINOL [Concomitant]
     Dosage: 100 UNK, 1X/DAY
  5. ASS [Concomitant]
     Dosage: 100 UNK, 1X/DAY

REACTIONS (6)
  - Off label use [Unknown]
  - Psychotic disorder [Unknown]
  - Aggression [Unknown]
  - Confusional state [Unknown]
  - Disorientation [Unknown]
  - Fall [Unknown]
